FAERS Safety Report 4976918-8 (Version None)
Quarter: 2006Q2

REPORT INFORMATION
  Report Type: 
  Country: None (occurrence: None)
  Receive Date: 20060419
  Receipt Date: 20060130
  Transmission Date: 20061013
  Serious: Yes (Death, Other)
  Sender: FDA-Public Use
  Company Number: PHBS2006CL01645

PATIENT
  Age: 88 Year
  Sex: Male

DRUGS (4)
  1. EXELON [Suspect]
     Dosage: 2 TAB/D
     Route: 048
  2. NORVASC [Concomitant]
  3. ASPIRINA [Concomitant]
  4. EUTIROX [Concomitant]

REACTIONS (2)
  - BRONCHOPNEUMONIA [None]
  - DIVERTICULITIS [None]
